FAERS Safety Report 9031899 (Version 1)
Quarter: 2013Q1

REPORT INFORMATION
  Report Type: Spontaneous
  Country: US (occurrence: US)
  Receive Date: 20130125
  Receipt Date: 20130125
  Transmission Date: 20140127
  Serious: No
  Sender: FDA-Public Use
  Company Number: US-ASTRAZENECA-2013SE03350

PATIENT
  Age: 65 Year
  Sex: Female
  Weight: 58.5 kg

DRUGS (5)
  1. ARIMIDEX [Suspect]
     Indication: BREAST CANCER
     Route: 048
     Dates: start: 20110704, end: 201212
  2. ARIMIDEX [Suspect]
     Indication: BREAST CANCER
     Route: 048
     Dates: start: 201212
  3. CALCIUM [Concomitant]
  4. VIT D [Concomitant]
  5. ALLEGRA [Concomitant]

REACTIONS (11)
  - Hypoaesthesia [Not Recovered/Not Resolved]
  - Vaginismus [Not Recovered/Not Resolved]
  - Depressed mood [Not Recovered/Not Resolved]
  - Weight increased [Not Recovered/Not Resolved]
  - Dysuria [Not Recovered/Not Resolved]
  - Paraesthesia [Not Recovered/Not Resolved]
  - Somnolence [Not Recovered/Not Resolved]
  - Hyperhidrosis [Not Recovered/Not Resolved]
  - Fatigue [Not Recovered/Not Resolved]
  - Hot flush [Not Recovered/Not Resolved]
  - Arthritis [Not Recovered/Not Resolved]
